FAERS Safety Report 8685734 (Version 2)
Quarter: 2014Q4

REPORT INFORMATION
  Report Type: Spontaneous
  Country: US (occurrence: US)
  Receive Date: 20120726
  Receipt Date: 20141104
  Transmission Date: 20150529
  Serious: Yes (Death, Other)
  Sender: FDA-Public Use
  Company Number: US-GLAXOSMITHKLINE-A0733463A

PATIENT
  Age: 54 Year
  Sex: Male

DRUGS (1)
  1. AVANDIA [Suspect]
     Active Substance: ROSIGLITAZONE MALEATE
     Indication: TYPE 2 DIABETES MELLITUS
     Dates: start: 2003, end: 20061020

REACTIONS (9)
  - Myocardial ischaemia [Unknown]
  - Cardio-respiratory arrest [Fatal]
  - Cardiomyopathy [Unknown]
  - Cardiac failure congestive [Unknown]
  - Arteriosclerosis [Unknown]
  - Cardiac hypertrophy [Unknown]
  - Diabetes mellitus [Unknown]
  - Dyspnoea [Unknown]
  - Jaundice [Unknown]

NARRATIVE: CASE EVENT DATE: 200308
